FAERS Safety Report 19997426 (Version 2)
Quarter: 2021Q4

REPORT INFORMATION
  Report Type: Spontaneous
  Country: JP (occurrence: JP)
  Receive Date: 20211026
  Receipt Date: 20211126
  Transmission Date: 20220303
  Serious: Yes (Death)
  Sender: FDA-Public Use
  Company Number: JP-BAYER-2021A232494

PATIENT
  Sex: Female

DRUGS (3)
  1. VENTAVIS [Suspect]
     Active Substance: ILOPROST
     Indication: Pulmonary arterial hypertension
     Dosage: UNK
     Route: 065
     Dates: end: 20211005
  2. OPSUMIT [Suspect]
     Active Substance: MACITENTAN
     Indication: Pulmonary arterial hypertension
     Dosage: UNK
     Route: 048
  3. ADEMPAS [Suspect]
     Active Substance: RIOCIGUAT
     Indication: Pulmonary arterial hypertension
     Dosage: 0.5MG
     Route: 048
     Dates: end: 20211013

REACTIONS (1)
  - Cardiac failure chronic [Fatal]

NARRATIVE: CASE EVENT DATE: 20211015
